FAERS Safety Report 9895310 (Version 2)
Quarter: 2014Q1

REPORT INFORMATION
  Report Type: Spontaneous
  Country: US (occurrence: US)
  Receive Date: 20140213
  Receipt Date: 20140213
  Transmission Date: 20141002
  Serious: No
  Sender: FDA-Public Use
  Company Number: US-BRISTOL-MYERS SQUIBB COMPANY-18932020

PATIENT
  Age: 71 Year
  Sex: Female
  Weight: 63.04 kg

DRUGS (2)
  1. ABATACEPT SUBQ INJECTION 125MG/ML [Suspect]
     Indication: RHEUMATOID ARTHRITIS
     Route: 058
  2. ARAVA [Concomitant]

REACTIONS (3)
  - Ocular hyperaemia [Unknown]
  - Insomnia [Unknown]
  - Eye discharge [Unknown]
